FAERS Safety Report 5276384-1 (Version None)
Quarter: 2007Q1

REPORT INFORMATION
  Report Type: 
  Country: None (occurrence: None)
  Receive Date: 20070326
  Receipt Date: 20070312
  Transmission Date: 20070707
  Serious: Yes (Other)
  Sender: FDA-Public Use
  Company Number: US-SANOFI-SYNTHELABO-A03200702142

PATIENT
  Age: 62 Year
  Sex: Male

DRUGS (3)
  1. AMBIEN [Suspect]
     Route: 048
     Dates: end: 20060712
  2. CLARITIN [Concomitant]
     Dosage: UNK
     Route: 065
  3. NASONEX [Concomitant]
     Dosage: UNK
     Route: 065

REACTIONS (2)
  - AMNESIA [None]
  - SHOPLIFTING [None]
